FAERS Safety Report 10267127 (Version 2)
Quarter: 2014Q2

REPORT INFORMATION
  Report Type: Spontaneous
  Country: DE (occurrence: DE)
  Receive Date: 20140630
  Receipt Date: 20140630
  Transmission Date: 20141212
  Serious: Yes (Hospitalization)
  Sender: FDA-Public Use
  Company Number: DE-JNJFOC-20140513072

PATIENT
  Age: 57 Year
  Sex: Female
  Weight: 80 kg

DRUGS (3)
  1. CAELYX [Suspect]
     Indication: METASTASES TO LIVER
     Route: 042
  2. CAELYX [Suspect]
     Indication: BREAST CANCER
     Route: 042
  3. CAELYX [Suspect]
     Indication: OVARIAN CANCER
     Route: 042

REACTIONS (3)
  - Acute psychosis [Unknown]
  - Liver function test abnormal [Recovered/Resolved]
  - Treatment noncompliance [Unknown]
